FAERS Safety Report 5400772-3 (Version None)
Quarter: 2007Q3

REPORT INFORMATION
  Report Type: 
  Country: None (occurrence: None)
  Receive Date: 20070726
  Receipt Date: 20070717
  Transmission Date: 20080115
  Serious: Yes (Hospitalization)
  Sender: FDA-Public Use
  Company Number: 2007BI011617

PATIENT
  Age: 49 Year
  Sex: Male
  Weight: 77.1115 kg

DRUGS (2)
  1. AVONEX LYOPHILIZED [Suspect]
     Indication: MULTIPLE SCLEROSIS
     Dosage: 30 UG;QW; IM
     Route: 030
     Dates: start: 19960101, end: 20030101
  2. AVONEX [Suspect]
     Indication: MULTIPLE SCLEROSIS
     Dosage: 30 UG;QW; IM
     Route: 030
     Dates: start: 20030101

REACTIONS (8)
  - ABDOMINAL ADHESIONS [None]
  - COLLAPSE OF LUNG [None]
  - CONDITION AGGRAVATED [None]
  - DEAFNESS [None]
  - HERNIA [None]
  - MULTIPLE SCLEROSIS [None]
  - PNEUMONIA [None]
  - VISUAL ACUITY REDUCED [None]
